FAERS Safety Report 9880902 (Version 2)
Quarter: 2014Q1

REPORT INFORMATION
  Report Type: Spontaneous
  Country: GB (occurrence: GB)
  Receive Date: 20140207
  Receipt Date: 20140320
  Transmission Date: 20141002
  Serious: No
  Sender: FDA-Public Use
  Company Number: GB-IPSEN BIOPHARMACEUTICALS, INC.-2014-0618

PATIENT
  Age: 60 Year
  Sex: Male

DRUGS (3)
  1. SOMATULINE AUTOGEL 120MG [Suspect]
     Indication: ACROMEGALY
     Dosage: 120 MG
     Route: 065
  2. OMEPRAZOLE [Concomitant]
     Indication: PRODUCT USED FOR UNKNOWN INDICATION
     Dosage: NOT REPORTED
     Route: 065
  3. MESALAZINE [Concomitant]
     Indication: PRODUCT USED FOR UNKNOWN INDICATION
     Dosage: NOT REPORTED
     Route: 065

REACTIONS (1)
  - Adverse event [Unknown]
